FAERS Safety Report 23956870 (Version 2)
Quarter: 2025Q2

REPORT INFORMATION
  Report Type: Report from Study
  Country: US (occurrence: US)
  Receive Date: 20240610
  Receipt Date: 20250526
  Transmission Date: 20250717
  Serious: Yes (Death, Hospitalization, Other)
  Sender: CADILA
  Company Number: US-CPL-004251

PATIENT
  Age: 18 Year
  Sex: Female

DRUGS (2)
  1. BUPROPION [Suspect]
     Active Substance: BUPROPION
  2. DULOXETINE [Concomitant]
     Active Substance: DULOXETINE

REACTIONS (4)
  - Arrhythmia [Fatal]
  - Overdose [Fatal]
  - Seizure [Unknown]
  - Hypotension [Unknown]
